FAERS Safety Report 14205997 (Version 1)
Quarter: 2017Q4

REPORT INFORMATION
  Report Type: Spontaneous
  Country: US (occurrence: US)
  Receive Date: 20171120
  Receipt Date: 20171120
  Transmission Date: 20180321
  Serious: Yes (Hospitalization)
  Sender: FDA-Public Use
  Company Number: US-ACTELION-A-NJ2017-162747

PATIENT
  Age: 65 Year
  Sex: Female
  Weight: 58.5 kg

DRUGS (1)
  1. VELETRI [Suspect]
     Active Substance: EPOPROSTENOL
     Indication: PULMONARY ARTERIAL HYPERTENSION
     Dosage: 44.5 NG/KG, PER MIN
     Route: 042

REACTIONS (6)
  - Incoherent [Unknown]
  - Device alarm issue [Unknown]
  - Fatigue [Unknown]
  - Confusional state [Unknown]
  - Device occlusion [Unknown]
  - Device issue [Unknown]
